FAERS Safety Report 7729151-0 (Version None)
Quarter: 2011Q3

REPORT INFORMATION
  Report Type: 
  Country: None (occurrence: None)
  Receive Date: 20110906
  Receipt Date: 20110830
  Transmission Date: 20111222
  Serious: No
  Sender: FDA-Public Use
  Company Number: US-PFIZER INC-US-WYE-H17786810

PATIENT
  Age: 87 Year
  Sex: Female

DRUGS (2)
  1. MEDROXYPROGESTERONE ACETATE [Suspect]
     Dosage: 5 MG, UNK
     Route: 048
     Dates: start: 19630101
  2. PREMARIN [Suspect]
     Dosage: 1.25
     Route: 048
     Dates: start: 19630101

REACTIONS (1)
  - DRUG INEFFECTIVE [None]
